FAERS Safety Report 5066912-3 (Version None)
Quarter: 2006Q3

REPORT INFORMATION
  Report Type: 
  Country: None (occurrence: None)
  Receive Date: 20060726
  Receipt Date: 20060711
  Transmission Date: 20061208
  Serious: Yes (Death)
  Sender: FDA-Public Use
  Company Number: 2006S1006091

PATIENT
  Age: 44 Year
  Sex: Male

DRUGS (8)
  1. CLOZAPINE [Suspect]
     Indication: SCHIZOPHRENIA
     Dosage: 25 MG; BID; PO
     Route: 048
     Dates: start: 20020101, end: 20060501
  2. CLOZAPINE [Suspect]
     Indication: SCHIZOPHRENIA
     Dosage: 300 MG; HS; PO
     Route: 048
     Dates: start: 20020101, end: 20060501
  3. LEVOX [Concomitant]
  4. COMBIVENT /01033501/ [Concomitant]
  5. ATIVAN [Concomitant]
  6. GABAPENTIN [Concomitant]
  7. ALLEGRA /01314201/ [Concomitant]
  8. BENZOTROPINE [Concomitant]

REACTIONS (1)
  - GRANULOCYTOPENIA [None]
